FAERS Safety Report 14773638 (Version 2)
Quarter: 2018Q2

REPORT INFORMATION
  Report Type: Spontaneous
  Country: CN (occurrence: CN)
  Receive Date: 20180418
  Receipt Date: 20180504
  Transmission Date: 20180711
  Serious: Yes (Hospitalization)
  Sender: FDA-Public Use
  Company Number: CN-ABBVIE-18P-035-2325480-00

PATIENT
  Age: 53 Year
  Sex: Female

DRUGS (1)
  1. ENANTONE LP [Suspect]
     Active Substance: LEUPROLIDE ACETATE
     Indication: UTERINE LEIOMYOMA
     Dosage: 3.75 MG, MONTHLY
     Route: 050
     Dates: start: 20180402

REACTIONS (14)
  - Hyperhidrosis [Unknown]
  - Headache [Unknown]
  - Peripheral coldness [Unknown]
  - Chest discomfort [Unknown]
  - Hypoaesthesia [Unknown]
  - Tachycardia [Recovering/Resolving]
  - Hypertension [Recovering/Resolving]
  - Poor quality sleep [Not Recovered/Not Resolved]
  - Hyperglycaemia [Not Recovered/Not Resolved]
  - Head discomfort [Unknown]
  - Memory impairment [Unknown]
  - Confusional state [Unknown]
  - Pyrexia [Unknown]
  - Weight decreased [Unknown]

NARRATIVE: CASE EVENT DATE: 20180402
